FAERS Safety Report 21234112 (Version 4)
Quarter: 2022Q3

REPORT INFORMATION
  Report Type: Other
  Country: US (occurrence: None)
  Receive Date: 20220819
  Receipt Date: 20220922
  Transmission Date: 20221027
  Serious: Yes (Hospitalization, Other)
  Sender: FDA-Public Use
  Company Number: US-ROCHE-3162642

PATIENT
  Age: 72 Year
  Sex: Female
  Weight: 79.450 kg

DRUGS (6)
  1. OCREVUS [Suspect]
     Active Substance: OCRELIZUMAB
     Indication: Multiple sclerosis
     Dosage: YES, DOT: 09/AUG/2022, 26/JUL/2022
     Route: 042
     Dates: start: 20220726, end: 20220809
  2. OCREVUS [Suspect]
     Active Substance: OCRELIZUMAB
     Indication: Myelin oligodendrocyte glycoprotein antibody-associated disease
  3. RITUXAN [Suspect]
     Active Substance: RITUXIMAB
     Indication: Product used for unknown indication
     Dosage: ONGOING: UNKNOWN
     Route: 065
  4. RITUXAN [Suspect]
     Active Substance: RITUXIMAB
     Indication: Myelin oligodendrocyte glycoprotein antibody-associated disease
  5. SOLU-MEDROL [Suspect]
     Active Substance: METHYLPREDNISOLONE SODIUM SUCCINATE
     Indication: Myelin oligodendrocyte glycoprotein antibody-associated disease
     Dosage: ONGOING: UNKNOWN, RECEIVED 1,000MG WAS SUPPOSED TO RECEIVE 100MG WITH FIRST DOSE
     Route: 042
     Dates: start: 20220726, end: 20220726
  6. SOLU-MEDROL [Suspect]
     Active Substance: METHYLPREDNISOLONE SODIUM SUCCINATE
     Route: 042
     Dates: start: 20220809

REACTIONS (22)
  - COVID-19 pneumonia [Recovered/Resolved]
  - Feeling hot [Recovered/Resolved]
  - Dizziness [Recovering/Resolving]
  - Gait disturbance [Recovering/Resolving]
  - Coordination abnormal [Recovering/Resolving]
  - Skin discolouration [Not Recovered/Not Resolved]
  - Poor quality sleep [Recovered/Resolved]
  - Flushing [Recovered/Resolved]
  - Feeling abnormal [Recovered/Resolved]
  - Asthenia [Not Recovered/Not Resolved]
  - Fatigue [Unknown]
  - Insomnia [Unknown]
  - Head discomfort [Not Recovered/Not Resolved]
  - Balance disorder [Not Recovered/Not Resolved]
  - Rash macular [Recovering/Resolving]
  - Pain [Not Recovered/Not Resolved]
  - Mental fatigue [Not Recovered/Not Resolved]
  - Psychotic disorder [Unknown]
  - Petechiae [Unknown]
  - Off label use [Unknown]
  - Impaired driving ability [Not Recovered/Not Resolved]
  - Overdose [Unknown]

NARRATIVE: CASE EVENT DATE: 20220726
